FAERS Safety Report 4598268-4 (Version None)
Quarter: 2005Q1

REPORT INFORMATION
  Report Type: 
  Country: None (occurrence: None)
  Receive Date: 20050304
  Receipt Date: 20050302
  Transmission Date: 20050727
  Serious: Yes (Hospitalization)
  Sender: FDA-Public Use
  Company Number: DE-GLAXOSMITHKLINE-D0046051A

PATIENT

DRUGS (3)
  1. LAMICTAL [Suspect]
     Route: 065
  2. KEPPRA [Suspect]
     Route: 065
  3. TOPAMAX [Suspect]
     Route: 065

REACTIONS (1)
  - NEPHROLITHIASIS [None]
